FAERS Safety Report 23615987 (Version 6)
Quarter: 2024Q2

REPORT INFORMATION
  Report Type: Report from Study
  Country: US (occurrence: US)
  Receive Date: 20240311
  Receipt Date: 20240606
  Transmission Date: 20240716
  Serious: Yes (Other)
  Sender: FDA-Public Use
  Company Number: US-HORIZON THERAPEUTICS-HZN-2022-000986

PATIENT
  Age: 53 Year
  Sex: Male

DRUGS (12)
  1. TEPEZZA [Suspect]
     Active Substance: TEPROTUMUMAB-TRBW
     Indication: Endocrine ophthalmopathy
     Dosage: 950 MILLIGRAM, FIRST INFUSION
     Route: 042
     Dates: start: 20211103, end: 20211103
  2. TEPEZZA [Suspect]
     Active Substance: TEPROTUMUMAB-TRBW
     Dosage: 1900 MILLIGRAM, Q3WK (SECOND INFUSION)
     Route: 042
     Dates: start: 20211124
  3. TEPEZZA [Suspect]
     Active Substance: TEPROTUMUMAB-TRBW
     Dosage: 1900 MILLIGRAM, Q3WK (THIRD INFUSION)
     Route: 042
     Dates: start: 20211215
  4. TEPEZZA [Suspect]
     Active Substance: TEPROTUMUMAB-TRBW
     Dosage: 1900 MILLIGRAM, Q3WK (FOURTH INFUSION)
     Route: 042
     Dates: start: 20220111
  5. TEPEZZA [Suspect]
     Active Substance: TEPROTUMUMAB-TRBW
     Dosage: 1900 MILLIGRAM, Q3WK (FOURTH INFUSION)
     Route: 042
     Dates: start: 20220202
  6. TEPEZZA [Suspect]
     Active Substance: TEPROTUMUMAB-TRBW
     Dosage: 1900 MILLIGRAM, Q3WK (SIXTH INFUSION)
     Route: 042
     Dates: start: 20220202
  7. TEPEZZA [Suspect]
     Active Substance: TEPROTUMUMAB-TRBW
     Dosage: 1900 MILLIGRAM, Q3WK (SEVENTH INFUSION)
     Route: 042
     Dates: start: 20220223
  8. TEPEZZA [Suspect]
     Active Substance: TEPROTUMUMAB-TRBW
     Dosage: 1900 MILLIGRAM, Q3WK (EIGHTH INFUSION)
     Route: 042
     Dates: start: 20220223
  9. LISINOPRIL [Concomitant]
     Active Substance: LISINOPRIL
     Dosage: 10 MG, QD
  10. PREDNISONE [Concomitant]
     Active Substance: PREDNISONE
     Dosage: 60 MG, TID
  11. FISH OIL [Concomitant]
     Active Substance: FISH OIL
     Dosage: 435 MG, QD
     Route: 048
  12. LEVOTHYROXINE SODIUM [Concomitant]
     Active Substance: LEVOTHYROXINE SODIUM
     Dosage: 1 DOSAGE FORM, QD (150 MCG TABLET)
     Dates: start: 20220720

REACTIONS (25)
  - Deafness neurosensory [Not Recovered/Not Resolved]
  - Deafness permanent [Not Recovered/Not Resolved]
  - Exophthalmos [Unknown]
  - Physical disability [Not Recovered/Not Resolved]
  - Weight increased [Unknown]
  - Pain [Not Recovered/Not Resolved]
  - Injury [Not Recovered/Not Resolved]
  - Anxiety [Not Recovered/Not Resolved]
  - Emotional distress [Not Recovered/Not Resolved]
  - Impaired quality of life [Not Recovered/Not Resolved]
  - Hypoacusis [Not Recovered/Not Resolved]
  - Tinnitus [Not Recovered/Not Resolved]
  - Muscle spasms [Unknown]
  - Arthralgia [Recovered/Resolved]
  - Product quality issue [Unknown]
  - Dry skin [Unknown]
  - Dry eye [Unknown]
  - Fatigue [Unknown]
  - Weight decreased [Unknown]
  - Diplopia [Not Recovered/Not Resolved]
  - Post procedural hypothyroidism [Unknown]
  - Economic problem [Not Recovered/Not Resolved]
  - Photophobia [Unknown]
  - Product selection error [Unknown]
  - Incision site swelling [Unknown]

NARRATIVE: CASE EVENT DATE: 20211101
